FAERS Safety Report 5010003-4 (Version None)
Quarter: 2006Q2

REPORT INFORMATION
  Report Type: 
  Country: None (occurrence: None)
  Receive Date: 20060523
  Receipt Date: 20060508
  Transmission Date: 20061013
  Serious: Yes (Other)
  Sender: FDA-Public Use
  Company Number: 2006BL002352

PATIENT
  Age: 83 Year
  Sex: Female

DRUGS (3)
  1. FLOXAL AUGENTROPFEN (OFLOXACIN) [Suspect]
     Indication: HYPOPYON
     Dosage: EVERY FOUR HOUR; TOPICAL
     Route: 061
  2. FLOXAL AUGENTROPFEN (OFLOXACIN) [Suspect]
     Indication: ULCERATIVE KERATITIS
     Dosage: EVERY FOUR HOUR; TOPICAL
     Route: 061
  3. CYCLOPENTOLATE HCL [Concomitant]

REACTIONS (3)
  - CORNEAL DEPOSITS [None]
  - DRUG INTERACTION [None]
  - PH BODY FLUID ABNORMAL [None]
